FAERS Safety Report 13565758 (Version 1)
Quarter: 2017Q2

REPORT INFORMATION
  Report Type: Report from Study
  Country: None (occurrence: GB)
  Receive Date: 20170520
  Receipt Date: 20170520
  Transmission Date: 20170830
  Serious: Yes (Other)
  Sender: FDA-Public Use
  Company Number: GB-ABBVIE-17K-167-1980551-00

PATIENT
  Sex: Male

DRUGS (1)
  1. DUODOPA [Suspect]
     Active Substance: CARBIDOPA\LEVODOPA
     Indication: PARKINSON^S DISEASE
     Dosage: 1 X 100ML CASSETTE
     Route: 050

REACTIONS (4)
  - Dyskinesia [Unknown]
  - Extra dose administered [Unknown]
  - Upper limb fracture [Unknown]
  - Feeling abnormal [Unknown]
